FAERS Safety Report 4977519-8 (Version None)
Quarter: 2006Q2

REPORT INFORMATION
  Report Type: 
  Country: None (occurrence: None)
  Receive Date: 20060420
  Receipt Date: 20060407
  Transmission Date: 20061013
  Serious: Yes (Hospitalization)
  Sender: FDA-Public Use
  Company Number: FR-JNJFOC-20060103418

PATIENT
  Age: 44 Year
  Sex: Female
  Weight: 55 kg

DRUGS (6)
  1. REMICADE [Suspect]
     Dosage: 10 DAYS AFTER 1ST INFUSION
     Route: 042
  2. REMICADE [Suspect]
     Indication: CROHN'S DISEASE
     Dosage: 10 DAYS AFTER 1ST INFUSION
     Route: 042
  3. CORTANCYL [Suspect]
     Route: 048
  4. CORTANCYL [Suspect]
     Route: 048
  5. PURINETHOL [Suspect]
     Route: 048
  6. PARIET [Concomitant]
     Route: 048

REACTIONS (6)
  - DEEP VEIN THROMBOSIS [None]
  - ORAL FUNGAL INFECTION [None]
  - PHARYNGITIS [None]
  - PNEUMOCYSTIS JIROVECI PNEUMONIA [None]
  - PULMONARY EMBOLISM [None]
  - PYREXIA [None]
